FAERS Safety Report 15084754 (Version 1)
Quarter: 2018Q2

REPORT INFORMATION
  Report Type: Spontaneous
  Country: CN (occurrence: CN)
  Receive Date: 20180628
  Receipt Date: 20180628
  Transmission Date: 20180711
  Serious: Yes (Other)
  Sender: FDA-Public Use
  Company Number: CN-NOVOPROD-607030

PATIENT
  Age: 40 Year
  Sex: Male
  Weight: 63 kg

DRUGS (3)
  1. NOVORAPID [Suspect]
     Active Substance: INSULIN ASPART
     Indication: TYPE 2 DIABETES MELLITUS
     Dosage: 10 U, TID
     Route: 058
     Dates: start: 20180309
  2. NOVORAPID [Suspect]
     Active Substance: INSULIN ASPART
     Dosage: 14 U, TID
     Route: 058
  3. NOVORAPID [Suspect]
     Active Substance: INSULIN ASPART
     Dosage: 18 U, TID
     Route: 058
     Dates: start: 20180313, end: 20180315

REACTIONS (2)
  - Jaundice [Recovering/Resolving]
  - Hepatic function abnormal [Recovering/Resolving]

NARRATIVE: CASE EVENT DATE: 20180314
